FAERS Safety Report 16251108 (Version 1)
Quarter: 2019Q2

REPORT INFORMATION
  Report Type: Spontaneous
  Country: US (occurrence: US)
  Receive Date: 20190429
  Receipt Date: 20190429
  Transmission Date: 20190711
  Serious: No
  Sender: FDA-Public Use
  Company Number: US-ELI_LILLY_AND_COMPANY-US201904014227

PATIENT
  Sex: Male

DRUGS (1)
  1. HUMALOG KWIKPEN [Suspect]
     Active Substance: INSULIN LISPRO
     Indication: PRODUCT USED FOR UNKNOWN INDICATION
     Dosage: 10 IU, BEFORE MEALS
     Route: 065

REACTIONS (8)
  - Feeling abnormal [Unknown]
  - Product storage error [Unknown]
  - Product use issue [Unknown]
  - Tremor [Unknown]
  - Blood glucose decreased [Recovered/Resolved]
  - Product dose omission [Unknown]
  - Feeling abnormal [Recovered/Resolved]
  - Blood glucose decreased [Unknown]

NARRATIVE: CASE EVENT DATE: 2018
